FAERS Safety Report 18683552 (Version 1)
Quarter: 2020Q4

REPORT INFORMATION
  Report Type: Spontaneous
  Country: US (occurrence: US)
  Receive Date: 20201230
  Receipt Date: 20201230
  Transmission Date: 20210114
  Serious: Yes (Hospitalization)
  Sender: FDA-Public Use
  Company Number: None

PATIENT
  Age: 80 Year
  Sex: Female

DRUGS (1)
  1. RAYOS [Suspect]
     Active Substance: PREDNISONE

REACTIONS (7)
  - Dizziness [None]
  - Vomiting [None]
  - Therapy interrupted [None]
  - Bedridden [None]
  - Fall [None]
  - Gait inability [None]
  - Decreased activity [None]

NARRATIVE: CASE EVENT DATE: 20201216
